FAERS Safety Report 4525736-3 (Version None)
Quarter: 2004Q4

REPORT INFORMATION
  Report Type: 
  Country: None (occurrence: None)
  Receive Date: 20041116
  Receipt Date: 20040901
  Transmission Date: 20050328
  Serious: No
  Sender: FDA-Public Use
  Company Number: S04-USA-05979-01

PATIENT
  Age: 93 Year
  Sex: Female

DRUGS (12)
  1. NAMENDA [Suspect]
     Indication: DEMENTIA ALZHEIMER'S TYPE
     Dosage: 15 MG QD PO
     Route: 048
  2. NAMENDA [Suspect]
     Indication: DEMENTIA ALZHEIMER'S TYPE
     Dosage: 5 MG QD PO
     Route: 048
     Dates: start: 20040501
  3. NAMENDA [Suspect]
     Indication: DEMENTIA ALZHEIMER'S TYPE
     Dosage: 10 MG QD PO
     Route: 048
  4. EXELON [Concomitant]
  5. ARICEPT [Concomitant]
  6. MULTIVITAMIN WITH IRON [Concomitant]
  7. ASPIRIN [Concomitant]
  8. CLARITIN [Concomitant]
  9. NEURONTIN [Concomitant]
  10. SEROQUEL [Concomitant]
  11. REMERON [Concomitant]
  12. RESTORIL [Concomitant]

REACTIONS (1)
  - TREMOR [None]
